FAERS Safety Report 16751956 (Version 2)
Quarter: 2019Q3

REPORT INFORMATION
  Report Type: Spontaneous
  Country: KR (occurrence: KR)
  Receive Date: 20190828
  Receipt Date: 20190904
  Transmission Date: 20191005
  Serious: No
  Sender: FDA-Public Use
  Company Number: KR-JNJFOC-20190833045

PATIENT
  Sex: Male

DRUGS (3)
  1. RIVAROXABAN [Suspect]
     Active Substance: RIVAROXABAN
     Indication: CARDIAC VALVE DISEASE
     Route: 048
  2. RIVAROXABAN [Suspect]
     Active Substance: RIVAROXABAN
     Indication: ATRIAL FIBRILLATION
     Dosage: 15 MG
     Route: 048
  3. DILATREND [Concomitant]
     Active Substance: CARVEDILOL
     Dosage: UNK

REACTIONS (6)
  - Abdominal discomfort [Unknown]
  - Gamma-glutamyltransferase increased [Unknown]
  - Epistaxis [Unknown]
  - Off label use [Unknown]
  - Constipation [Unknown]
  - Product use in unapproved indication [Unknown]
